FAERS Safety Report 15298857 (Version 2)
Quarter: 2018Q3

REPORT INFORMATION
  Report Type: Report from Study
  Country: IL (occurrence: IL)
  Receive Date: 20180821
  Receipt Date: 20180910
  Transmission Date: 20181010
  Serious: Yes (Hospitalization, Other)
  Sender: FDA-Public Use
  Company Number: IL-BRISTOL-MYERS SQUIBB COMPANY-BMS-2018-076988

PATIENT
  Age: 64 Year
  Sex: Male
  Weight: 92 kg

DRUGS (5)
  1. TARGIN [Concomitant]
     Active Substance: NALOXONE HYDROCHLORIDE\OXYCODONE HYDROCHLORIDE
     Indication: PROPHYLAXIS
     Dosage: 20 MG, BID
     Route: 048
  2. XELODA [Concomitant]
     Active Substance: CAPECITABINE
     Indication: NEOPLASM MALIGNANT
     Dosage: 2.5 G, BID
     Route: 048
     Dates: start: 20180502
  3. LOSEC [Concomitant]
     Active Substance: OMEPRAZOLE
     Indication: PROPHYLAXIS
     Dosage: 20 MG, DAILY DOSE
     Route: 048
  4. APIXABAN [Suspect]
     Active Substance: APIXABAN
     Indication: DEEP VEIN THROMBOSIS
     Dosage: 5 MG, DAILY DOSE
     Route: 048
     Dates: start: 20180701, end: 20180813
  5. PRAMIN                             /00041902/ [Concomitant]
     Indication: NEOPLASM MALIGNANT
     Dosage: 10 MG, PRN
     Route: 048

REACTIONS (1)
  - Melaena [Not Recovered/Not Resolved]

NARRATIVE: CASE EVENT DATE: 20180813
